FAERS Safety Report 4316194-2 (Version None)
Quarter: 2004Q1

REPORT INFORMATION
  Report Type: 
  Country: None (occurrence: None)
  Receive Date: 20040312
  Receipt Date: 20040301
  Transmission Date: 20041129
  Serious: Yes (Hospitalization)
  Sender: FDA-Public Use
  Company Number: US-GLAXOSMITHKLINE-A0500606A

PATIENT
  Age: 24 Year
  Sex: Male
  Weight: 113.6 kg

DRUGS (3)
  1. ROSIGLITAZONE MALEATE [Suspect]
     Indication: PSORIASIS
     Dosage: 4MG PER DAY
     Route: 048
     Dates: start: 20030731
  2. IBUPROFEN [Concomitant]
     Indication: HEADACHE
     Route: 048
     Dates: start: 19980101
  3. CETAPHIL [Concomitant]
     Indication: PSORIASIS
     Route: 061

REACTIONS (3)
  - BLOOD PRESSURE INCREASED [None]
  - MIGRAINE [None]
  - MONOPLEGIA [None]
